FAERS Safety Report 15300266 (Version 2)
Quarter: 2018Q3

REPORT INFORMATION
  Report Type: Spontaneous
  Country: TR (occurrence: TR)
  Receive Date: 20180821
  Receipt Date: 20180828
  Transmission Date: 20181010
  Serious: Yes (Other)
  Sender: FDA-Public Use
  Company Number: TR-ALKEM LABORATORIES LIMITED-TR-ALKEM-2018-06644

PATIENT
  Age: 60 Year
  Sex: Male

DRUGS (1)
  1. CEFUROXIME AXETIL. [Suspect]
     Active Substance: CEFUROXIME AXETIL
     Indication: PRODUCT USED FOR UNKNOWN INDICATION
     Dosage: 2 MG/0.1 ML
     Route: 031

REACTIONS (7)
  - Cystoid macular oedema [Recovered/Resolved]
  - Subretinal fluid [Recovered/Resolved]
  - Toxicity to various agents [Recovered/Resolved]
  - Macular detachment [Recovered/Resolved]
  - Macula thickness measurement [Recovered/Resolved]
  - Retinal oedema [Recovered/Resolved]
  - Product preparation error [Recovered/Resolved]
